FAERS Safety Report 6972023-X (Version None)
Quarter: 2010Q3

REPORT INFORMATION
  Report Type: 
  Country: None (occurrence: None)
  Receive Date: 20100909
  Receipt Date: 20100830
  Transmission Date: 20110219
  Serious: Yes (Other)
  Sender: FDA-Public Use
  Company Number: VE-BIOGENIDEC-2010BI015800

PATIENT
  Sex: Female

DRUGS (4)
  1. TYSABRI [Suspect]
     Indication: MULTIPLE SCLEROSIS
     Route: 042
     Dates: start: 20100329
  2. LYRICA [Concomitant]
     Indication: TRIGEMINAL NEURALGIA
  3. SIRDALUD [Concomitant]
     Indication: TRIGEMINAL NEURALGIA
  4. RIVOTRIL [Concomitant]
     Indication: TRIGEMINAL NEURALGIA

REACTIONS (7)
  - APATHY [None]
  - ARTHRALGIA [None]
  - CHEILITIS [None]
  - GAIT DISTURBANCE [None]
  - HEADACHE [None]
  - RASH [None]
  - RESPIRATORY DISTRESS [None]
